FAERS Safety Report 8020014-2 (Version None)
Quarter: 2012Q1

REPORT INFORMATION
  Report Type: 
  Country: None (occurrence: None)
  Receive Date: 20120103
  Receipt Date: 20111228
  Transmission Date: 20120608
  Serious: Yes (Hospitalization, Other)
  Sender: FDA-Public Use
  Company Number: PHHY2011FR113478

PATIENT
  Sex: Female

DRUGS (14)
  1. CAPTOPRIL [Suspect]
     Dosage: 25 MG, BID
     Dates: start: 20110909, end: 20111017
  2. PANTOPRAZOLE [Concomitant]
     Dosage: 40 MG, QD
     Dates: start: 20111001, end: 20111022
  3. ACETAMINOPHEN [Concomitant]
     Dosage: 1 G, QID
     Dates: start: 20111005, end: 20111022
  4. HYPERIUM [Concomitant]
     Dosage: 1 MG, QD
     Dates: start: 20111010, end: 20111022
  5. HYDROCORTISONE [Concomitant]
     Dosage: 10 MG, QD
  6. NICARDIPINE HCL [Suspect]
     Dosage: UNK
  7. EUPRESSYL [Concomitant]
     Dosage: 60 MG, BID
     Dates: start: 20111006, end: 20111022
  8. ARANESP [Concomitant]
  9. NICARDIPINE HCL [Suspect]
     Indication: HYPERTENSION
     Route: 042
  10. UVEDOSE [Concomitant]
  11. COUMADIN [Suspect]
     Dosage: 6 MG, QD
     Route: 048
     Dates: end: 20111024
  12. ASPIRIN [Concomitant]
     Dates: start: 20110924, end: 20111022
  13. NICARDIPINE HCL [Suspect]
     Dosage: 1 DF, TID
     Dates: start: 20111004, end: 20111022
  14. IMOVANE [Concomitant]
     Dosage: 7.5 MG, QD

REACTIONS (6)
  - INTERNATIONAL NORMALISED RATIO INCREASED [None]
  - HAEMATEMESIS [None]
  - NEUTROPHIL COUNT DECREASED [None]
  - HAEMOGLOBIN DECREASED [None]
  - AGRANULOCYTOSIS [None]
  - PYREXIA [None]
